FAERS Safety Report 9665448 (Version 1)
Quarter: 2013Q4

REPORT INFORMATION
  Report Type: Spontaneous
  Country: US (occurrence: US)
  Receive Date: 20131104
  Receipt Date: 20131104
  Transmission Date: 20140711
  Serious: No
  Sender: FDA-Public Use
  Company Number: US-009507513-1310USA013241

PATIENT
  Age: 33 Year
  Sex: Female

DRUGS (2)
  1. STROMECTOL [Suspect]
     Route: 048
  2. PERMETHRIN [Concomitant]

REACTIONS (1)
  - Drug ineffective [Unknown]
